FAERS Safety Report 7363113-0 (Version None)
Quarter: 2011Q1

REPORT INFORMATION
  Report Type: 
  Country: None (occurrence: None)
  Receive Date: 20110321
  Receipt Date: 20100917
  Transmission Date: 20110831
  Serious: Yes (Hospitalization, Other)
  Sender: FDA-Public Use
  Company Number: US-BAYER-201034362NA

PATIENT
  Sex: Female
  Weight: 43 kg

DRUGS (6)
  1. OCELLA [Suspect]
     Dosage: UNK
     Route: 048
     Dates: start: 20080701, end: 20081201
  2. MULTI-VITAMINS [Concomitant]
  3. NSAID'S [Concomitant]
     Dosage: UNK UNK, PRN
  4. YASMIN [Suspect]
     Dosage: UNK
     Route: 048
     Dates: start: 20050701, end: 20080701
  5. YASMIN [Suspect]
     Dates: start: 20081201, end: 20090101
  6. OCELLA [Suspect]
     Dosage: UNK
     Dates: start: 20090101, end: 20100901

REACTIONS (5)
  - CHOLECYSTECTOMY [None]
  - CHOLELITHIASIS [None]
  - CHOLECYSTITIS CHRONIC [None]
  - ABDOMINAL PAIN UPPER [None]
  - BILIARY COLIC [None]
